FAERS Safety Report 5089903-5 (Version None)
Quarter: 2006Q3

REPORT INFORMATION
  Report Type: 
  Country: None (occurrence: None)
  Receive Date: 20060731
  Receipt Date: 20050606
  Transmission Date: 20061208
  Serious: Yes (Other)
  Sender: FDA-Public Use
  Company Number: 200611889BWH

PATIENT
  Age: 83 Year
  Sex: Male

DRUGS (1)
  1. AVELOX [Suspect]
     Indication: DRUG USE FOR UNKNOWN INDICATION
     Dosage: 400 MG ONCE INTRAVENOUS
     Route: 042
     Dates: start: 20050321, end: 20050322

REACTIONS (1)
  - ATRIAL FIBRILLATION [None]
